FAERS Safety Report 8196805-4 (Version None)
Quarter: 2012Q1

REPORT INFORMATION
  Report Type: 
  Country: None (occurrence: None)
  Receive Date: 20120309
  Receipt Date: 20120305
  Transmission Date: 20120608
  Serious: Yes (Other)
  Sender: FDA-Public Use
  Company Number: AU-PFIZER INC-2012058631

PATIENT
  Age: 67 Year
  Sex: Female

DRUGS (2)
  1. CAPTOPRIL [Suspect]
     Dosage: UNK
     Dates: end: 20111201
  2. LIPITOR [Suspect]
     Dosage: 10 MG, UNK
     Dates: end: 20120211

REACTIONS (9)
  - MUSCULAR WEAKNESS [None]
  - HEADACHE [None]
  - ASTHENIA [None]
  - HYPOAESTHESIA [None]
  - FATIGUE [None]
  - TINNITUS [None]
  - PARAESTHESIA [None]
  - LOSS OF CONSCIOUSNESS [None]
  - BLOOD PRESSURE DECREASED [None]
